FAERS Safety Report 9376661 (Version 1)
Quarter: 2013Q3

REPORT INFORMATION
  Report Type: Spontaneous
  Country: DE (occurrence: DE)
  Receive Date: 20130701
  Receipt Date: 20130701
  Transmission Date: 20140515
  Serious: Yes (Congenital Anomaly, Other)
  Sender: FDA-Public Use
  Company Number: DE-009507513-1306DEU011770

PATIENT
  Sex: Male
  Weight: 3.22 kg

DRUGS (2)
  1. MIRTAZAPINE [Suspect]
     Indication: ANXIETY DISORDER
     Dosage: UNK
     Route: 064
  2. TAVOR [Suspect]
     Indication: ANXIETY DISORDER
     Dosage: UNK
     Route: 064

REACTIONS (3)
  - Pyloric stenosis [Recovered/Resolved with Sequelae]
  - Surgery [Recovered/Resolved]
  - Foetal exposure during pregnancy [Recovered/Resolved]
